FAERS Safety Report 9785677 (Version 1)
Quarter: 2013Q4

REPORT INFORMATION
  Report Type: Spontaneous
  Country: FR (occurrence: None)
  Receive Date: 20131224
  Receipt Date: 20131224
  Transmission Date: 20140711
  Serious: Yes (Life-Threatening)
  Sender: FDA-Public Use
  Company Number: DSM-2013-01211

PATIENT
  Age: 40 Year
  Sex: Female

DRUGS (5)
  1. AXELER [Suspect]
     Indication: PRODUCT USED FOR UNKNOWN INDICATION
     Route: 048
     Dates: end: 20131127
  2. RILMENIDINE [Suspect]
     Indication: PRODUCT USED FOR UNKNOWN INDICATION
     Route: 048
     Dates: end: 20131127
  3. ACEBUTOLOL [Suspect]
     Indication: PRODUCT USED FOR UNKNOWN INDICATION
     Route: 048
     Dates: end: 20131127
  4. XANAX [Suspect]
     Indication: PRODUCT USED FOR UNKNOWN INDICATION
     Route: 048
     Dates: end: 20131128
  5. BUPENORPHINE HYDROCHLORIDE (BUPRENORPHINE HYDROCHLORIDE) (TABLET) (BUPRENORPHINE HYDROCHLORIDE) [Concomitant]

REACTIONS (5)
  - Overdose [None]
  - Poisoning [None]
  - Coma [None]
  - Peripheral circulatory failure [None]
  - Renal failure [None]
